FAERS Safety Report 6087833-3 (Version None)
Quarter: 2009Q1

REPORT INFORMATION
  Report Type: 
  Country: None (occurrence: None)
  Receive Date: 20090219
  Receipt Date: 20081105
  Transmission Date: 20090719
  Serious: No
  Sender: FDA-Public Use
  Company Number: WAES 0701USA00549

PATIENT
  Age: 53 Year
  Sex: Male
  Weight: 118.3888 kg

DRUGS (5)
  1. JANUVIA [Suspect]
     Indication: TYPE 2 DIABETES MELLITUS
     Dosage: 100 MG/DAILY/PO
     Route: 048
     Dates: start: 20061230, end: 20070101
  2. PRAVACHOL [Concomitant]
  3. TOPROL-XL [Concomitant]
  4. ALLOPURINOL [Concomitant]
  5. METFORMIN HCL [Concomitant]

REACTIONS (1)
  - HEAD TITUBATION [None]
